FAERS Safety Report 25482747 (Version 1)
Quarter: 2025Q2

REPORT INFORMATION
  Report Type: Spontaneous
  Country: TW (occurrence: TW)
  Receive Date: 20250626
  Receipt Date: 20250626
  Transmission Date: 20250716
  Serious: Yes (Life-Threatening, Hospitalization, Other)
  Sender: TAKEDA
  Company Number: TW-MMM-Otsuka-P3NUJ6M5

PATIENT
  Age: 44 Year
  Sex: Male

DRUGS (4)
  1. ICLUSIG [Suspect]
     Active Substance: PONATINIB HYDROCHLORIDE
     Indication: Chronic myeloid leukaemia
     Dosage: 45 MILLIGRAM, QD
     Dates: start: 20240703, end: 20240907
  2. ICLUSIG [Suspect]
     Active Substance: PONATINIB HYDROCHLORIDE
     Dosage: 30 MILLIGRAM, QD
  3. SPRYCEL [Suspect]
     Active Substance: DASATINIB
     Indication: Acute leukaemia
     Dosage: 100 MILLIGRAM, QD
     Dates: start: 20230510, end: 20230920
  4. TASIGNA [Suspect]
     Active Substance: NILOTINIB
     Indication: Chronic myeloid leukaemia
     Dosage: 300 MILLIGRAM, BID
     Dates: start: 20230510, end: 20230607

REACTIONS (15)
  - Cardiac arrest [Recovered/Resolved]
  - Disseminated intravascular coagulation [Recovered/Resolved]
  - COVID-19 [Recovered/Resolved]
  - Respiratory failure [Unknown]
  - Metabolic acidosis [Unknown]
  - Lactic acidosis [Unknown]
  - Renal failure [Recovering/Resolving]
  - Hyperkalaemia [Unknown]
  - Arrhythmia [Unknown]
  - Hepatic failure [Recovered/Resolved]
  - Tumour lysis syndrome [Unknown]
  - Sepsis [Recovered/Resolved]
  - Pancytopenia [Recovering/Resolving]
  - Dyspnoea [Unknown]
  - Febrile neutropenia [Recovering/Resolving]

NARRATIVE: CASE EVENT DATE: 20240907
